FAERS Safety Report 5626953-1 (Version None)
Quarter: 2008Q1

REPORT INFORMATION
  Report Type: 
  Country: None (occurrence: None)
  Receive Date: 20080212
  Receipt Date: 20061109
  Transmission Date: 20080703
  Serious: Yes (Other)
  Sender: FDA-Public Use
  Company Number: CHNY2006GB03122

PATIENT
  Sex: Male
  Weight: 80 kg

DRUGS (11)
  1. SCOPODERM TTS (NCH)(HYOSCINE HYDROBROMIDE) TRANS-THERAPEUTIC-SYSTEM [Suspect]
     Indication: SALIVARY HYPERSECRETION
     Dosage: 1 MG, TRANSDERMAL
     Route: 062
     Dates: start: 20061018, end: 20061020
  2. AMIODARONE HCL [Concomitant]
  3. ASPIRIN [Concomitant]
  4. ATENOLOL [Concomitant]
  5. HALOPERIDOL [Concomitant]
  6. LORAZEPAM [Concomitant]
  7. RAMIPRIL [Concomitant]
  8. RANITIDINE [Concomitant]
  9. SENNA (SENNA, SENNA ALEXANDRINA) [Concomitant]
  10. SIMVASTATIN [Concomitant]
  11. ZOPICLONE (ZOPICLONE) [Concomitant]

REACTIONS (5)
  - ABNORMAL BEHAVIOUR [None]
  - HALLUCINATION [None]
  - INSOMNIA [None]
  - MYDRIASIS [None]
  - RESTLESSNESS [None]
